FAERS Safety Report 5822813-1 (Version None)
Quarter: 2008Q3

REPORT INFORMATION
  Report Type: 
  Country: None (occurrence: None)
  Receive Date: 20080725
  Receipt Date: 20080717
  Transmission Date: 20090109
  Serious: No
  Sender: FDA-Public Use
  Company Number: JP-ASTRAZENECA-2008AP05284

PATIENT
  Age: 88 Year
  Sex: Male

DRUGS (3)
  1. ZOLADEX [Suspect]
     Indication: PROSTATE CANCER
     Route: 058
     Dates: start: 20041005, end: 20050601
  2. ZOLADEX [Suspect]
     Route: 058
     Dates: start: 20050711
  3. CASODEX [Suspect]
     Indication: PROSTATE CANCER
     Route: 048
     Dates: start: 20071029

REACTIONS (2)
  - ANAEMIA [None]
  - THROMBOCYTOPENIA [None]
